FAERS Safety Report 10059513 (Version 2)
Quarter: 2014Q2

REPORT INFORMATION
  Report Type: Spontaneous
  Country: FR (occurrence: FR)
  Receive Date: 20140404
  Receipt Date: 20140408
  Transmission Date: 20141212
  Serious: Yes (Hospitalization)
  Sender: FDA-Public Use
  Company Number: FR-PFIZER INC-2014093998

PATIENT
  Age: 71 Year
  Sex: Female

DRUGS (7)
  1. DALACINE [Suspect]
     Indication: ANTIBIOTIC THERAPY
     Dosage: SINGLE ADMINISTRATION
     Route: 042
     Dates: start: 20131218, end: 20131218
  2. PROPOFOL ^FRESENIUS^ [Suspect]
     Indication: ANAESTHESIA
     Dosage: SINGLE ADMINISTRATION
     Route: 042
     Dates: start: 20131218, end: 20131218
  3. DEXAMETHASONE MYLAN [Suspect]
     Indication: PROPHYLAXIS OF NAUSEA AND VOMITING
     Dosage: SINGLE ADMINISTRATION
     Route: 042
     Dates: start: 20131218, end: 20131218
  4. DROLEPTAN [Suspect]
     Indication: PROPHYLAXIS OF NAUSEA AND VOMITING
     Dosage: SINGLE ADMINISTRATION
     Route: 042
     Dates: start: 20131218, end: 20131218
  5. GENTAMICIN ^PANPHARMA^ [Suspect]
     Indication: ANTIBIOTIC THERAPY
     Dosage: SINGLE ADMINISTRATION
     Route: 042
     Dates: start: 20131218, end: 20131218
  6. SUFENTANIL MYLAN [Concomitant]
     Indication: ANAESTHESIA
     Dosage: SINGLE ADMINISTRATION
     Route: 042
     Dates: start: 20131218, end: 20131218
  7. NIMBEX [Concomitant]
     Indication: ANAESTHESIA
     Dosage: SINGLE ADMINISTRATION
     Route: 042
     Dates: start: 20131218, end: 20131218

REACTIONS (4)
  - Hypersensitivity [Recovered/Resolved]
  - Sinus tachycardia [Recovered/Resolved]
  - Hypotension [Recovered/Resolved]
  - Oxygen saturation decreased [Recovered/Resolved]
